FAERS Safety Report 16471563 (Version 1)
Quarter: 2019Q2

REPORT INFORMATION
  Report Type: Spontaneous
  Country: US (occurrence: US)
  Receive Date: 20190624
  Receipt Date: 20190624
  Transmission Date: 20190711
  Serious: Yes (Hospitalization, Other)
  Sender: FDA-Public Use
  Company Number: US-PFIZER INC-2019270962

PATIENT
  Age: 59 Year
  Sex: Female

DRUGS (2)
  1. XANAX [Suspect]
     Active Substance: ALPRAZOLAM
     Dosage: 30 MG, UNK
     Route: 048
  2. XANAX [Suspect]
     Active Substance: ALPRAZOLAM
     Dosage: UNK
     Route: 048

REACTIONS (6)
  - Lethargy [Unknown]
  - Psychotic disorder [Unknown]
  - Pulse abnormal [Unknown]
  - Agitation [Unknown]
  - Intentional overdose [Unknown]
  - Suicide attempt [Unknown]
